FAERS Safety Report 9636556 (Version 1)
Quarter: 2013Q4

REPORT INFORMATION
  Report Type: Spontaneous
  Country: AU (occurrence: AU)
  Receive Date: 20131021
  Receipt Date: 20131021
  Transmission Date: 20140711
  Serious: Yes (Death)
  Sender: FDA-Public Use
  Company Number: AU-BAXTER-2013BAX041227

PATIENT
  Age: 70 Year
  Sex: Male

DRUGS (1)
  1. SYNTHAMIN 17 AMINO ACID 10% WITHOUT ELECTROLYTES AND GLUCOSE 50% 1000M [Suspect]
     Indication: PARENTERAL NUTRITION
     Route: 065
     Dates: end: 20131015

REACTIONS (1)
  - Death [Fatal]
